FAERS Safety Report 5655142-X (Version None)
Quarter: 2008Q1

REPORT INFORMATION
  Report Type: 
  Country: None (occurrence: None)
  Receive Date: 20080307
  Receipt Date: 20080228
  Transmission Date: 20080703
  Serious: Yes (Hospitalization)
  Sender: FDA-Public Use
  Company Number: US-BAYER-200811885LA

PATIENT
  Age: 40 Year
  Sex: Female

DRUGS (5)
  1. DACARBAZINE [Suspect]
     Indication: MALIGNANT MELANOMA
     Route: 042
     Dates: start: 20071217
  2. IPILIMUMAB OR PLACEBO (NON-BAYER DRUG) [Suspect]
     Indication: MALIGNANT MELANOMA
     Route: 042
     Dates: start: 20071217
  3. OMEPRAZOLE [Concomitant]
     Indication: DRUG USE FOR UNKNOWN INDICATION
     Route: 065
     Dates: start: 20071126
  4. ALPRAZOLAM [Concomitant]
     Indication: DRUG USE FOR UNKNOWN INDICATION
     Route: 065
     Dates: start: 20071126
  5. BROMAZEPAM [Concomitant]
     Indication: DRUG USE FOR UNKNOWN INDICATION
     Route: 065

REACTIONS (5)
  - ABDOMINAL PAIN [None]
  - DIARRHOEA [None]
  - FOOD INTOLERANCE [None]
  - GASTROINTESTINAL INFECTION [None]
  - MUCOSAL INFLAMMATION [None]
